FAERS Safety Report 9447387 (Version 1)
Quarter: 2013Q3

REPORT INFORMATION
  Report Type: Spontaneous
  Country: GB (occurrence: GB)
  Receive Date: 20130808
  Receipt Date: 20130808
  Transmission Date: 20140515
  Serious: Yes (Life-Threatening)
  Sender: FDA-Public Use
  Company Number: GB-RANBAXY-2013R1-71861

PATIENT
  Age: 44 Year
  Sex: Female
  Weight: 79 kg

DRUGS (6)
  1. CO-AMOXICLAV [Suspect]
     Indication: SURGERY
     Dosage: UNK
     Route: 042
     Dates: start: 20130701, end: 20130701
  2. ATRACURIUM [Suspect]
     Indication: ANAESTHESIA
     Dosage: UNK
     Route: 042
     Dates: start: 20130701, end: 20130701
  3. DEXAMETHASONE [Concomitant]
     Indication: ANAESTHESIA
     Dosage: UNK
     Route: 042
     Dates: start: 20130701, end: 20130701
  4. FENTANYL [Concomitant]
     Indication: ANAESTHESIA
     Dosage: UNK
     Route: 042
     Dates: start: 20130701, end: 20130701
  5. ONDANSETRON [Concomitant]
     Indication: ANAESTHESIA
     Dosage: UNK
     Route: 042
     Dates: start: 20130701, end: 20130701
  6. PROPOFOL [Concomitant]
     Indication: ANAESTHESIA
     Dosage: UNK
     Route: 042
     Dates: start: 20130701, end: 20130701

REACTIONS (2)
  - Rash [Recovered/Resolved]
  - Stridor [Recovered/Resolved]
